FAERS Safety Report 16024023 (Version 1)
Quarter: 2019Q1

REPORT INFORMATION
  Report Type: Spontaneous
  Country: US (occurrence: US)
  Receive Date: 20190301
  Receipt Date: 20190301
  Transmission Date: 20190418
  Serious: No
  Sender: FDA-Public Use
  Company Number: US-BAYER-2019-042955

PATIENT
  Age: 7 Month
  Sex: Male
  Weight: 10 kg

DRUGS (3)
  1. MIRALAX [Suspect]
     Active Substance: POLYETHYLENE GLYCOL 3350
     Indication: CONSTIPATION
     Dosage: 1/2 OF THE 17 GRAMS DAILY^
  2. MIRALAX [Suspect]
     Active Substance: POLYETHYLENE GLYCOL 3350
     Indication: GASTROINTESTINAL DISORDER
     Dosage: 1/4 OF THE 17 GRAMS DAILY^
  3. MIRALAX [Suspect]
     Active Substance: POLYETHYLENE GLYCOL 3350
     Indication: GASTROINTESTINAL DISORDER
     Dosage: 1 DF, QD
     Route: 048
     Dates: start: 201805

REACTIONS (5)
  - Abnormal faeces [Unknown]
  - Off label use [Unknown]
  - Product use in unapproved indication [Unknown]
  - Gastrointestinal disorder [Unknown]
  - Abnormal faeces [Unknown]

NARRATIVE: CASE EVENT DATE: 201811
